FAERS Safety Report 4946584-6 (Version None)
Quarter: 2006Q1

REPORT INFORMATION
  Report Type: 
  Country: None (occurrence: None)
  Receive Date: 20060317
  Receipt Date: 20060228
  Transmission Date: 20060701
  Serious: Yes (Other)
  Sender: FDA-Public Use
  Company Number: 2006/00229

PATIENT
  Age: 54 Year
  Sex: Male

DRUGS (7)
  1. ZANTAC [Suspect]
     Dosage: 300MG PER DAY
     Route: 048
  2. CYCLOSPORINE [Suspect]
     Route: 065
  3. CELLCEPT [Suspect]
     Route: 065
  4. PREDNISONE [Suspect]
     Route: 065
  5. METFORMIN [Suspect]
     Route: 065
  6. DIAMICRON [Suspect]
     Route: 065
  7. IMMUNOSUPPRESSIVE [Suspect]
     Route: 065

REACTIONS (6)
  - BLOOD CHOLESTEROL INCREASED [None]
  - BLOOD PRESSURE INCREASED [None]
  - HEADACHE [None]
  - PARAESTHESIA [None]
  - POLYNEUROPATHY [None]
  - SKIN CANCER [None]
